FAERS Safety Report 5747686-7 (Version None)
Quarter: 2008Q2

REPORT INFORMATION
  Report Type: 
  Country: None (occurrence: None)
  Receive Date: 20080523
  Receipt Date: 20080516
  Transmission Date: 20081010
  Serious: Yes (Hospitalization, Other)
  Sender: FDA-Public Use
  Company Number: MX-AVENTIS-200814655GDDC

PATIENT
  Age: 75 Year
  Sex: Female
  Weight: 68 kg

DRUGS (5)
  1. LANTUS [Suspect]
     Indication: TYPE 2 DIABETES MELLITUS
     Route: 058
     Dates: start: 20050101
  2. GLYBURIDE [Concomitant]
     Indication: TYPE 2 DIABETES MELLITUS
     Route: 048
  3. GLYBURIDE [Concomitant]
     Dosage: DOSE UNIT: 003
     Route: 048
  4. UNKNOWN DRUG [Concomitant]
  5. UNKNOWN DRUG [Concomitant]

REACTIONS (2)
  - EPISTAXIS [None]
  - HYPOGLYCAEMIA [None]
